FAERS Safety Report 5962128-4 (Version None)
Quarter: 2008Q4

REPORT INFORMATION
  Report Type: 
  Country: None (occurrence: None)
  Receive Date: 20081121
  Receipt Date: 20081111
  Transmission Date: 20090506
  Serious: Yes (Death, Other)
  Sender: FDA-Public Use
  Company Number: AT-ROCHE-588129

PATIENT
  Sex: Female
  Weight: 69 kg

DRUGS (1)
  1. PEG-INTERFERON ALFA 2A (RO 25-8310) [Suspect]
     Dosage: DATE OF LAST DOSE PRIOR TO SAE: 22 NOVEMBER 2006. DOSAGE FORM PREFILLED SYRINGE.
     Route: 058
     Dates: start: 20060210, end: 20061123

REACTIONS (3)
  - DEATH [None]
  - METASTASIS [None]
  - METASTATIC MALIGNANT MELANOMA [None]
